FAERS Safety Report 4309241-5 (Version None)
Quarter: 2004Q1

REPORT INFORMATION
  Report Type: 
  Country: None (occurrence: None)
  Receive Date: 20040301
  Receipt Date: 20040213
  Transmission Date: 20041129
  Serious: Yes (Death)
  Sender: FDA-Public Use
  Company Number: 02100-JPN-04-0018

PATIENT
  Age: 82 Year
  Sex: Female

DRUGS (7)
  1. CILOSTAZOL [Suspect]
     Indication: ARTERIAL OCCLUSIVE DISEASE
     Dosage: 150 MG ORAL
     Route: 048
     Dates: start: 20040109, end: 20040112
  2. CALCIUM CARBONATE [Concomitant]
  3. ACETYLSALICYLIC ACID [Concomitant]
  4. BROTIZOLAM [Concomitant]
  5. SENNOSIDE [Concomitant]
  6. AMLODIPINE BESYLATE [Concomitant]
  7. VALSARTAN [Concomitant]

REACTIONS (4)
  - BLOOD PRESSURE DECREASED [None]
  - BLOOD PRESSURE INCREASED [None]
  - CARDIAC FAILURE ACUTE [None]
  - SUDDEN DEATH [None]
